FAERS Safety Report 6631374-9 (Version None)
Quarter: 2010Q1

REPORT INFORMATION
  Report Type: 
  Country: None (occurrence: None)
  Receive Date: 20100311
  Receipt Date: 20100311
  Transmission Date: 20100710
  Serious: Yes (Other)
  Sender: FDA-Public Use
  Company Number: None

PATIENT
  Age: 33 Year
  Sex: Female
  Weight: 63.5036 kg

DRUGS (1)
  1. ETANERCEPT 50MG AMGEN WYETH [Suspect]
     Indication: RHEUMATOID ARTHRITIS
     Dosage: 50MG WEEKLY SQ
     Route: 058
     Dates: start: 20090302, end: 20100112

REACTIONS (4)
  - CARPAL TUNNEL SYNDROME [None]
  - DIZZINESS [None]
  - NEUROPATHY PERIPHERAL [None]
  - PARAESTHESIA [None]
